FAERS Safety Report 7190273-7 (Version None)
Quarter: 2010Q4

REPORT INFORMATION
  Report Type: 
  Country: None (occurrence: None)
  Receive Date: 20101223
  Receipt Date: 20101215
  Transmission Date: 20110411
  Serious: Yes (Death, Hospitalization)
  Sender: FDA-Public Use
  Company Number: US-CELGENEUS-163-21880-07081157

PATIENT
  Age: 94 Year
  Sex: Female
  Weight: 85.9 kg

DRUGS (8)
  1. REVLIMID [Suspect]
     Route: 048
     Dates: start: 20070802, end: 20070806
  2. METOPROLOL [Concomitant]
     Route: 065
  3. DIGOXIN [Concomitant]
     Route: 065
  4. KLOR-CON [Concomitant]
     Route: 065
  5. CALCIUM [Concomitant]
     Route: 065
  6. MAGNESIUM SULFATE [Concomitant]
     Route: 065
  7. CENTRUM [Concomitant]
     Route: 065
  8. LASIX [Concomitant]
     Route: 065

REACTIONS (2)
  - PULMONARY OEDEMA [None]
  - THROMBOCYTOPENIA [None]
